FAERS Safety Report 6472429-1 (Version None)
Quarter: 2009Q4

REPORT INFORMATION
  Report Type: 
  Country: None (occurrence: None)
  Receive Date: 20091201
  Receipt Date: 20091117
  Transmission Date: 20100525
  Serious: Yes (Congenital Anomaly)
  Sender: FDA-Public Use
  Company Number: 238358K09USA

PATIENT
  Age: 20 Week

DRUGS (4)
  1. REBIF [Suspect]
     Indication: MULTIPLE SCLEROSIS
     Dosage: 44 MCG, 3 IN 1 WEEKS, TRANSPLACENTAL
     Route: 064
     Dates: start: 20080809, end: 20081126
  2. YAZ [Suspect]
     Indication: CONTRACEPTION
     Dosage: TRANSPLACENTAL
     Route: 064
     Dates: start: 20080601, end: 20081201
  3. FLEXERIL [Suspect]
     Indication: MUSCLE SPASMS
     Dosage: 10 MG, TRANSPLACENTAL
     Route: 064
  4. NORCO [Suspect]
     Indication: PAIN

REACTIONS (8)
  - ABORTION INDUCED [None]
  - CONGENITAL HYDROCEPHALUS [None]
  - DRUG EXPOSURE DURING PREGNANCY [None]
  - MENINGOMYELOCELE [None]
  - NEURAL TUBE DEFECT [None]
  - PREGNANCY ON ORAL CONTRACEPTIVE [None]
  - SPINA BIFIDA [None]
  - TALIPES [None]
